FAERS Safety Report 7460741-9 (Version None)
Quarter: 2011Q2

REPORT INFORMATION
  Report Type: 
  Country: None (occurrence: None)
  Receive Date: 20110505
  Receipt Date: 20110502
  Transmission Date: 20111010
  Serious: Yes (Hospitalization, Other)
  Sender: FDA-Public Use
  Company Number: US-PFIZER INC-2011038321

PATIENT
  Sex: Male

DRUGS (8)
  1. VALIUM [Concomitant]
     Indication: ANXIETY
     Dosage: UNK
     Dates: start: 19970101
  2. HALDOL [Concomitant]
     Indication: TOURETTE'S DISORDER
     Dosage: UNK
     Dates: start: 19910101, end: 20090101
  3. BENZTROPEINE [Concomitant]
     Indication: TOURETTE'S DISORDER
     Dosage: UNK
     Dates: start: 19910101, end: 20090101
  4. CHANTIX [Suspect]
     Indication: SMOKING CESSATION THERAPY
     Dosage: 0.5MG/1MG
     Dates: start: 20080101, end: 20080301
  5. OXYCODONE [Concomitant]
     Indication: PAIN
     Dosage: UNK
     Dates: start: 20000101, end: 20100101
  6. PROPRANOLOL [Concomitant]
     Indication: ANXIETY
     Dosage: UNK
     Dates: start: 19970101, end: 20100101
  7. XANAX [Concomitant]
     Indication: ANXIETY
     Dosage: UNK
     Dates: start: 19970101
  8. FLEXERIL [Concomitant]
     Indication: PAIN
     Dosage: UNK
     Dates: start: 20000101, end: 20100101

REACTIONS (9)
  - ANXIETY [None]
  - AGITATION [None]
  - AMNESIA [None]
  - DEPRESSION [None]
  - BIPOLAR DISORDER [None]
  - CONFUSIONAL STATE [None]
  - INSOMNIA [None]
  - INTENTIONAL OVERDOSE [None]
  - SUICIDE ATTEMPT [None]
